FAERS Safety Report 13878836 (Version 1)
Quarter: 2017Q3

REPORT INFORMATION
  Report Type: Spontaneous
  Country: US (occurrence: US)
  Receive Date: 20170817
  Receipt Date: 20170817
  Transmission Date: 20171127
  Serious: No
  Sender: FDA-Public Use
  Company Number: US-SYNERGY PHARMACEUTICALS INC-US-2017SNG000075

PATIENT

DRUGS (1)
  1. TRULANCE [Suspect]
     Active Substance: PLECANATIDE
     Indication: COLITIS ULCERATIVE
     Dosage: 3 MG, QD
     Route: 048
     Dates: start: 20170520

REACTIONS (4)
  - Vomiting [Not Recovered/Not Resolved]
  - Drug dose omission [Unknown]
  - Influenza [Not Recovered/Not Resolved]
  - Product use in unapproved indication [Not Recovered/Not Resolved]

NARRATIVE: CASE EVENT DATE: 20170520
